FAERS Safety Report 4675786-1 (Version None)
Quarter: 2005Q2

REPORT INFORMATION
  Report Type: 
  Country: None (occurrence: None)
  Receive Date: 20050527
  Receipt Date: 20050511
  Transmission Date: 20051028
  Serious: Yes (Hospitalization, Other)
  Sender: FDA-Public Use
  Company Number: US-BRISTOL-MYERS SQUIBB COMPANY-12965323

PATIENT
  Age: 59 Year
  Sex: Female

DRUGS (20)
  1. CETUXIMAB [Suspect]
     Indication: LUNG CANCER METASTATIC
     Dosage: LAST ADMINISTERED 19-MAY-2005 (COURSE 5)
     Route: 042
     Dates: start: 20050505, end: 20050505
  2. CISPLATIN [Suspect]
     Indication: LUNG CANCER METASTATIC
     Dosage: LAST ADMINISTERED 12-MAY-2005 (COURSE 2)
     Route: 042
     Dates: start: 20050428, end: 20050428
  3. GEMCITABINE [Suspect]
     Indication: LUNG CANCER METASTATIC
     Dosage: LAST ADMINISTERED 19-MAY-2005 (COURSE 4)
     Route: 042
     Dates: start: 20050421, end: 20050421
  4. LISINOPRIL [Concomitant]
     Indication: HYPERTENSION
     Dates: start: 20030801
  5. NEURONTIN [Concomitant]
     Dates: start: 20040629
  6. MULTIVITAMIN [Concomitant]
     Dates: start: 20010101
  7. ULTRACET [Concomitant]
     Dates: start: 20030101
  8. AMBIEN [Concomitant]
     Dates: start: 20020101
  9. LEXAPRO [Concomitant]
     Dates: start: 20040101
  10. SENOKOT [Concomitant]
     Dates: start: 20050201
  11. EMEND [Concomitant]
     Indication: PROPHYLAXIS OF NAUSEA AND VOMITING
     Dates: start: 20050421
  12. ALOXI [Concomitant]
     Indication: PROPHYLAXIS OF NAUSEA AND VOMITING
     Dates: start: 20050421
  13. DECADRON [Concomitant]
     Indication: PROPHYLAXIS OF NAUSEA AND VOMITING
     Dates: start: 20050421
  14. LASIX [Concomitant]
     Indication: PROPHYLAXIS
     Dates: start: 20050421
  15. MANNITOL [Concomitant]
     Indication: PROPHYLAXIS
     Dates: start: 20050421
  16. POTASSIUM CHLORIDE [Concomitant]
     Indication: SUBSTITUTION THERAPY
     Dates: start: 20050421
  17. MAGNESIUM SULFATE [Concomitant]
     Indication: SUBSTITUTION THERAPY
     Dates: start: 20050421
  18. BENADRYL [Concomitant]
     Dates: start: 20050421
  19. COMPAZINE [Concomitant]
     Indication: VOMITING
     Dates: start: 20050421
  20. TYLENOL (CAPLET) [Concomitant]
     Indication: PROPHYLAXIS
     Dates: start: 20050421

REACTIONS (19)
  - ANXIETY [None]
  - BLOOD PRESSURE INCREASED [None]
  - DEPRESSION [None]
  - DYSPNOEA [None]
  - ESCHERICHIA URINARY TRACT INFECTION [None]
  - HAEMOGLOBIN DECREASED [None]
  - INFUSION RELATED REACTION [None]
  - MITRAL VALVE INCOMPETENCE [None]
  - MUSCLE TWITCHING [None]
  - ORAL INTAKE REDUCED [None]
  - PLEURAL EFFUSION [None]
  - RASH PRURITIC [None]
  - RESPIRATORY RATE INCREASED [None]
  - SINUS TACHYCARDIA [None]
  - TACHYPNOEA [None]
  - TRICUSPID VALVE INCOMPETENCE [None]
  - URINARY TRACT INFECTION [None]
  - VOMITING [None]
  - WHITE BLOOD CELL COUNT DECREASED [None]
